FAERS Safety Report 7314826-8 (Version None)
Quarter: 2011Q1

REPORT INFORMATION
  Report Type: 
  Country: None (occurrence: None)
  Receive Date: 20110225
  Receipt Date: 20101228
  Transmission Date: 20110831
  Serious: Yes (Other)
  Sender: FDA-Public Use
  Company Number: US-MYLANLABS-2010S1023730

PATIENT
  Sex: Female

DRUGS (4)
  1. AMNESTEEM [Suspect]
     Indication: ACNE
     Route: 048
  2. CLARAVIS [Suspect]
     Indication: ACNE
     Route: 048
  3. SOTRET [Suspect]
     Indication: ACNE
     Route: 048
     Dates: end: 20061127
  4. ACCUTANE [Suspect]
     Indication: ACNE
     Route: 048

REACTIONS (1)
  - GASTROINTESTINAL INJURY [None]
